FAERS Safety Report 12971114 (Version 2)
Quarter: 2016Q4

REPORT INFORMATION
  Report Type: Spontaneous
  Country: US (occurrence: US)
  Receive Date: 20161123
  Receipt Date: 20161128
  Transmission Date: 20170207
  Serious: No
  Sender: FDA-Public Use
  Company Number: US-JAZZ-2016-US-019232

PATIENT
  Sex: Male

DRUGS (13)
  1. ICY HOT [Suspect]
     Active Substance: MENTHOL\METHYL SALICYLATE
     Indication: PRODUCT USED FOR UNKNOWN INDICATION
  2. FEXOFENADINE HCL [Concomitant]
     Active Substance: FEXOFENADINE HYDROCHLORIDE
  3. FIBER LAXATIVE [Concomitant]
     Active Substance: CALCIUM POLYCARBOPHIL
  4. MULTIVITAMINS                      /00116001/ [Concomitant]
  5. PEG 3350 [Concomitant]
     Active Substance: POLYETHYLENE GLYCOL 3350
  6. XYREM [Suspect]
     Active Substance: SODIUM OXYBATE
     Dosage: 4.5 G, BID
     Route: 048
     Dates: start: 201609
  7. XYREM [Suspect]
     Active Substance: SODIUM OXYBATE
     Dosage: 3 G, BID
     Route: 048
     Dates: start: 201608, end: 201609
  8. ANDROGEL [Concomitant]
     Active Substance: TESTOSTERONE
  9. PRILOSEC [Concomitant]
     Active Substance: OMEPRAZOLE MAGNESIUM
  10. VIAGRA [Concomitant]
     Active Substance: SILDENAFIL CITRATE
  11. XYREM [Suspect]
     Active Substance: SODIUM OXYBATE
     Indication: NARCOLEPSY
     Dosage: 2.25 G, BID
     Route: 048
     Dates: start: 201607, end: 201608
  12. FLOMAX [Concomitant]
     Active Substance: TAMSULOSIN HYDROCHLORIDE
  13. VYVANSE [Concomitant]
     Active Substance: LISDEXAMFETAMINE DIMESYLATE

REACTIONS (1)
  - Hypervigilance [Unknown]

NARRATIVE: CASE EVENT DATE: 2016
